FAERS Safety Report 8504199-7 (Version None)
Quarter: 2012Q3

REPORT INFORMATION
  Report Type: 
  Country: None (occurrence: None)
  Receive Date: 20120711
  Receipt Date: 20120709
  Transmission Date: 20120928
  Serious: No
  Sender: FDA-Public Use
  Company Number: US-TEVA-347468USA

PATIENT
  Sex: Female
  Weight: 54.934 kg

DRUGS (14)
  1. TUSSIN                             /00048001/ [Concomitant]
     Indication: COUGH
     Dates: start: 20120705
  2. MULTI-VITAMIN [Concomitant]
  3. PROAIR HFA [Suspect]
     Indication: COUGH
  4. AMLODIPINE [Concomitant]
     Indication: HYPERTENSION
  5. ATORVASTATIN [Concomitant]
     Indication: BLOOD CHOLESTEROL INCREASED
  6. CALCIUM [Concomitant]
  7. LEVOTHYROXINE SODIUM [Concomitant]
     Indication: HYPOTHYROIDISM
  8. PROAIR HFA [Suspect]
     Indication: DYSPNOEA
  9. TUSSIN                             /00048001/ [Concomitant]
     Indication: NASOPHARYNGITIS
  10. LOVAZA [Concomitant]
  11. ASPIRIN [Concomitant]
     Indication: COAGULOPATHY
  12. PROAIR HFA [Suspect]
     Indication: NASOPHARYNGITIS
     Dosage: 270 MICROGRAM;
     Route: 055
     Dates: start: 20120705
  13. VITAMIN D [Concomitant]
  14. ATENOLOL [Concomitant]
     Indication: HYPERTENSION

REACTIONS (2)
  - DIZZINESS [None]
  - HEADACHE [None]
